FAERS Safety Report 18410999 (Version 4)
Quarter: 2021Q1

REPORT INFORMATION
  Report Type: Spontaneous
  Country: JP (occurrence: JP)
  Receive Date: 20201021
  Receipt Date: 20210316
  Transmission Date: 20210419
  Serious: Yes (Hospitalization, Other)
  Sender: FDA-Public Use
  Company Number: JP-AMGEN-JPNSP2020167348

PATIENT
  Age: 13 Year
  Sex: Male
  Weight: 40 kg

DRUGS (14)
  1. BLINCYTO [Suspect]
     Active Substance: BLINATUMOMAB
     Indication: B PRECURSOR TYPE ACUTE LEUKAEMIA
     Dosage: 7.625 MICROGRAM, QD
     Route: 042
     Dates: start: 20200917, end: 20200923
  2. DEXART [Concomitant]
     Active Substance: DEXAMETHASONE SODIUM PHOSPHATE
     Dosage: 13.2 MILLIGRAM, QD
     Dates: start: 20201029, end: 20201029
  3. BAKTAR [Concomitant]
     Active Substance: SULFAMETHOXAZOLE\TRIMETHOPRIM
     Indication: PROPHYLAXIS
     Dosage: UNK UNK, 2 TIMES/WK
  4. DEXART [Concomitant]
     Active Substance: DEXAMETHASONE SODIUM PHOSPHATE
     Indication: PROPHYLAXIS
     Dosage: 13.2 MILLIGRAM, QD
     Dates: start: 20200917, end: 20200917
  5. BLINCYTO [Suspect]
     Active Substance: BLINATUMOMAB
     Dosage: 22.5 MICROGRAM, QD
     Route: 042
     Dates: start: 20200924, end: 20201010
  6. BLINCYTO [Suspect]
     Active Substance: BLINATUMOMAB
     Dosage: 7.625 MICROGRAM, QD
     Route: 041
     Dates: start: 20201029, end: 20201104
  7. METHOTREXATE. [Concomitant]
     Active Substance: METHOTREXATE
     Dosage: 15 MILLIGRAM, Q2WK
     Dates: start: 20201029, end: 20201125
  8. BLINCYTO [Suspect]
     Active Substance: BLINATUMOMAB
     Dosage: 22.5 MICROGRAM, QD
     Route: 041
     Dates: start: 20201105, end: 20201125
  9. SOLDEM 1 [Concomitant]
     Active Substance: DEXTROSE\SODIUM CHLORIDE\SODIUM LACTATE
     Indication: SUPPLEMENTATION THERAPY
     Dosage: 480 MILLILITER, QID
     Dates: start: 20200917, end: 20201010
  10. ACELIO [Concomitant]
     Active Substance: ACETAMINOPHEN
     Indication: ANALGESIC THERAPY
     Dosage: 600 MILLIGRAM, QD
     Dates: start: 20201010, end: 20201010
  11. SOLDEM 1 [Concomitant]
     Active Substance: DEXTROSE\SODIUM CHLORIDE\SODIUM LACTATE
     Dosage: 480 MILLILITER, QID
     Dates: start: 20201029, end: 20201104
  12. BLINCYTO [Suspect]
     Active Substance: BLINATUMOMAB
     Dosage: UNK
     Route: 042
  13. METHOTREXATE. [Concomitant]
     Active Substance: METHOTREXATE
     Indication: B PRECURSOR TYPE ACUTE LEUKAEMIA
     Dosage: 15 MILLIGRAM, Q2WK
     Dates: start: 20200917, end: 20201014
  14. KENKETSU VENILON I [Concomitant]
     Indication: HYPOGAMMAGLOBULINAEMIA
     Dosage: 5 GRAM (3 TIMES BETWEEN 29?SEP?2020 AND17?NOV?2020
     Dates: start: 20200929, end: 20201117

REACTIONS (5)
  - Bile duct stone [Recovered/Resolved]
  - Cytokine release syndrome [Recovering/Resolving]
  - Constipation [Recovering/Resolving]
  - Hypogammaglobulinaemia [Recovering/Resolving]
  - CSF cell count increased [Recovering/Resolving]

NARRATIVE: CASE EVENT DATE: 20200929
